FAERS Safety Report 25413007 (Version 1)
Quarter: 2025Q2

REPORT INFORMATION
  Report Type: Spontaneous
  Country: US (occurrence: None)
  Receive Date: 20250606
  Receipt Date: 20250606
  Transmission Date: 20250717
  Serious: Yes (Other)
  Sender: FDA-CTU
  Company Number: None

PATIENT
  Age: 67 Year
  Sex: Male

DRUGS (7)
  1. REPATHA [Suspect]
     Active Substance: EVOLOCUMAB
     Route: 058
     Dates: start: 20250601, end: 20250601
  2. METFORMIN [Concomitant]
     Active Substance: METFORMIN HYDROCHLORIDE
     Dates: end: 20250606
  3. EZETIMIBE [Concomitant]
     Active Substance: EZETIMIBE
     Dates: end: 20250606
  4. JARDIANCE [Concomitant]
     Active Substance: EMPAGLIFLOZIN
     Dates: end: 20250606
  5. LOSARTAN [Concomitant]
     Active Substance: LOSARTAN
     Dates: end: 20250606
  6. Ozempic 2mg inj pen [Concomitant]
     Dates: end: 20250606
  7. Vascepa 1gm cap [Concomitant]
     Dates: end: 20250606

REACTIONS (3)
  - Back pain [None]
  - Hyperglycaemia [None]
  - Pollakiuria [None]

NARRATIVE: CASE EVENT DATE: 20250603
